FAERS Safety Report 25865293 (Version 1)
Quarter: 2025Q3

REPORT INFORMATION
  Report Type: Spontaneous
  Country: US (occurrence: None)
  Receive Date: 20250930
  Receipt Date: 20250930
  Transmission Date: 20251021
  Serious: Yes (Hospitalization)
  Sender: FDA-CTU
  Company Number: None

PATIENT
  Age: 78 Year
  Sex: Female

DRUGS (12)
  1. LENALIDOMIDE [Suspect]
     Active Substance: LENALIDOMIDE
     Indication: Plasma cell myeloma
     Route: 048
     Dates: end: 20250920
  2. NINLARO [Suspect]
     Active Substance: IXAZOMIB CITRATE
  3. IRON [Concomitant]
     Active Substance: IRON
  4. REMERON [Concomitant]
     Active Substance: MIRTAZAPINE
  5. RETACRIT [Concomitant]
     Active Substance: EPOETIN ALFA-EPBX
  6. ZOMETA [Concomitant]
     Active Substance: ZOLEDRONIC ACID
  7. ELIQUIS [Concomitant]
     Active Substance: APIXABAN
  8. FOi.JC ACID [Concomitant]
  9. LIPITOR [Concomitant]
     Active Substance: ATORVASTATIN CALCIUM
  10. LOSARTAN [Suspect]
     Active Substance: LOSARTAN
  11. METFORMIN [Concomitant]
     Active Substance: METFORMIN HYDROCHLORIDE
  12. METOPROLOL [Concomitant]
     Active Substance: METOPROLOL

REACTIONS (1)
  - Haemoglobin decreased [None]

NARRATIVE: CASE EVENT DATE: 20250920
